FAERS Safety Report 5888949-4 (Version None)
Quarter: 2008Q3

REPORT INFORMATION
  Report Type: 
  Country: None (occurrence: None)
  Receive Date: 20080918
  Receipt Date: 20080918
  Transmission Date: 20090109
  Serious: No
  Sender: FDA-Public Use
  Company Number: None

PATIENT
  Sex: Female
  Weight: 77.8 kg

DRUGS (2)
  1. CYTARABINE [Suspect]
     Dosage: 1323 MG
     Dates: end: 20080819
  2. DAUNORUBICIN HCL [Suspect]
     Dosage: 339 MG
     Dates: end: 20080814

REACTIONS (8)
  - ATRIAL THROMBOSIS [None]
  - CARDIAC PSEUDOANEURYSM [None]
  - CORONARY ARTERY ANEURYSM [None]
  - CYTOKINE STORM [None]
  - IMMUNE RECONSTITUTION SYNDROME [None]
  - INFECTION [None]
  - JUGULAR VEIN THROMBOSIS [None]
  - RESPIRATORY FAILURE [None]
